FAERS Safety Report 9895060 (Version 2)
Quarter: 2014Q1

REPORT INFORMATION
  Report Type: Spontaneous
  Country: US (occurrence: US)
  Receive Date: 20140213
  Receipt Date: 20140213
  Transmission Date: 20141002
  Serious: No
  Sender: FDA-Public Use
  Company Number: US-BRISTOL-MYERS SQUIBB COMPANY-17473968

PATIENT
  Age: 50 Year
  Sex: Female

DRUGS (1)
  1. ORENCIA [Suspect]
     Dosage: LAST INFUSION:09MAR2013
     Route: 042

REACTIONS (6)
  - Eye infection [Unknown]
  - Pyrexia [Unknown]
  - Cough [Unknown]
  - Arthralgia [Unknown]
  - Dyspnoea [Unknown]
  - Musculoskeletal chest pain [Unknown]
